FAERS Safety Report 15390604 (Version 1)
Quarter: 2018Q3

REPORT INFORMATION
  Report Type: Spontaneous
  Country: SE (occurrence: SE)
  Receive Date: 20180917
  Receipt Date: 20180917
  Transmission Date: 20181010
  Serious: Yes (Disabling)
  Sender: FDA-Public Use
  Company Number: SE-SA-2018SA071123

PATIENT
  Age: 77 Year
  Sex: Female

DRUGS (10)
  1. ALVEDON [Concomitant]
     Active Substance: ACETAMINOPHEN
     Dosage: 500 MG 2 X 1?2
     Route: 065
  2. PROPAVAN [Concomitant]
     Active Substance: PROPIOMAZINE
     Dosage: 25 MG,QD
     Route: 065
  3. CANDESARSTAD [Concomitant]
     Dosage: 16 MG,QD
     Route: 065
  4. TOUJEO [Suspect]
     Active Substance: INSULIN GLARGINE
     Indication: TYPE 1 DIABETES MELLITUS
     Dosage: 5 DF,UNK
     Route: 058
     Dates: start: 20171219, end: 20180103
  5. TARGIN [Suspect]
     Active Substance: NALOXONE HYDROCHLORIDE\OXYCODONE HYDROCHLORIDE
     Indication: SCIATICA
     Dosage: UNK UNK,UNK
     Route: 065
  6. LASIX [Concomitant]
     Active Substance: FUROSEMIDE
     Dosage: 30 MG,QD
     Route: 065
  7. AMLODIPINE [Concomitant]
     Active Substance: AMLODIPINE BESYLATE
     Dosage: 5 MG,QD
     Route: 065
  8. IMOVANE [Concomitant]
     Active Substance: ZOPICLONE
     Dosage: 7.5 MG,QD
     Route: 065
  9. CLARITHROMYCIN. [Suspect]
     Active Substance: CLARITHROMYCIN
     Indication: BRONCHITIS
     Dosage: 1000 MG,QD
     Route: 048
     Dates: start: 20180108, end: 20180114
  10. NOVORAPID [Concomitant]
     Active Substance: INSULIN ASPART
     Dosage: UNK UNK,UNK
     Route: 065
     Dates: start: 20170524

REACTIONS (3)
  - Blood glucose fluctuation [Recovered/Resolved]
  - Tremor [Recovering/Resolving]
  - Myalgia [Not Recovered/Not Resolved]

NARRATIVE: CASE EVENT DATE: 20171226
